FAERS Safety Report 14097351 (Version 6)
Quarter: 2018Q2

REPORT INFORMATION
  Report Type: Report from Study
  Country: BR (occurrence: BR)
  Receive Date: 20171017
  Receipt Date: 20180503
  Transmission Date: 20180711
  Serious: Yes (Hospitalization)
  Sender: FDA-Public Use
  Company Number: BR-ROCHE-1955404

PATIENT
  Age: 64 Year
  Sex: Male
  Weight: 93.9 kg

DRUGS (11)
  1. HYDROCHLOROTHIAZIDE. [Concomitant]
     Active Substance: HYDROCHLOROTHIAZIDE
     Route: 048
     Dates: start: 2002
  2. GABAPENTIN. [Concomitant]
     Active Substance: GABAPENTIN
     Route: 048
     Dates: start: 20170628, end: 20180320
  3. AMLODIPINE [Concomitant]
     Active Substance: AMLODIPINE BESYLATE
     Route: 048
     Dates: start: 2002
  4. METHYLDOPA. [Concomitant]
     Active Substance: METHYLDOPA
     Route: 048
     Dates: start: 2002
  5. PROPRANOLOL [Concomitant]
     Active Substance: PROPRANOLOL HYDROCHLORIDE
     Route: 048
     Dates: start: 2002
  6. CARVEDILOL. [Concomitant]
     Active Substance: CARVEDILOL
     Route: 048
     Dates: start: 20170607
  7. CODEINE [Concomitant]
     Active Substance: CODEINE
     Route: 048
     Dates: start: 20170519, end: 20170918
  8. ATEZOLIZUMAB. [Suspect]
     Active Substance: ATEZOLIZUMAB
     Indication: MALIGNANT URINARY TRACT NEOPLASM
     Dosage: ON 31/MAY/2017, THE PATIENT RECEIVED MOST RECENT DOSE.
     Route: 042
     Dates: start: 20170531, end: 20170705
  9. ATENOLOL. [Concomitant]
     Active Substance: ATENOLOL
     Route: 048
     Dates: start: 201701, end: 20170606
  10. DEXAMETHASONE. [Concomitant]
     Active Substance: DEXAMETHASONE
     Indication: ASTHENIA
     Route: 042
     Dates: start: 20170620, end: 20170620
  11. ONDANSETRON [Concomitant]
     Active Substance: ONDANSETRON
     Indication: ASTHENIA
     Route: 042
     Dates: start: 20170620, end: 20170620

REACTIONS (1)
  - Nephritis [Recovered/Resolved]

NARRATIVE: CASE EVENT DATE: 20170621
